FAERS Safety Report 12437688 (Version 1)
Quarter: 2016Q2

REPORT INFORMATION
  Report Type: Spontaneous
  Country: US (occurrence: US)
  Receive Date: 20160606
  Receipt Date: 20160606
  Transmission Date: 20160815
  Serious: No
  Sender: FDA-Public Use
  Company Number: US-TARO-2016TAR00325

PATIENT
  Age: 67 Year
  Sex: Female
  Weight: 60.77 kg

DRUGS (6)
  1. SYNTHROID [Concomitant]
     Active Substance: LEVOTHYROXINE SODIUM
     Dosage: 50 ?G, UNK
  2. PREMARIN [Concomitant]
     Active Substance: ESTROGENS, CONJUGATED
  3. NORTRIPTYLINE HCL CAPSULES 75 MG [Suspect]
     Active Substance: NORTRIPTYLINE HYDROCHLORIDE
     Indication: PANIC ATTACK
  4. ESTROGEN [Concomitant]
     Active Substance: ESTRONE\SUS SCROFA OVARY
     Dosage: 325 MG, UNK
  5. NORTRIPTYLINE HCL CAPSULES 75 MG [Suspect]
     Active Substance: NORTRIPTYLINE HYDROCHLORIDE
     Indication: MIGRAINE
  6. NORTRIPTYLINE HCL CAPSULES 75 MG [Suspect]
     Active Substance: NORTRIPTYLINE HYDROCHLORIDE
     Indication: POSTPARTUM DEPRESSION
     Dosage: 75 MG, 1X/DAY
     Route: 048
     Dates: start: 2000, end: 2016

REACTIONS (3)
  - Diarrhoea [Recovered/Resolved]
  - Antidepressant drug level below therapeutic [Unknown]
  - Product substitution issue [Not Recovered/Not Resolved]

NARRATIVE: CASE EVENT DATE: 201603
